FAERS Safety Report 4459247-0 (Version None)
Quarter: 2004Q3

REPORT INFORMATION
  Report Type: 
  Country: None (occurrence: None)
  Receive Date: 20040920
  Receipt Date: 20040920
  Transmission Date: 20050211
  Serious: Yes (Hospitalization)
  Sender: FDA-Public Use
  Company Number: None

PATIENT
  Age: 37 Year
  Sex: Male
  Weight: 112.9457 kg

DRUGS (2)
  1. CELECOXIB    200MG   PHARMACIA [Suspect]
     Indication: METASTATIC RENAL CELL CARCINOMA
     Dosage: 400 NG BID ORAL
     Route: 048
     Dates: end: 20040906
  2. INTERFERON ALFA     3MIU    SCHERING [Suspect]
     Dosage: 3 MIU QD SUBCUTANEOUS
     Route: 058
     Dates: end: 20040906

REACTIONS (7)
  - ATELECTASIS [None]
  - COMPUTERISED TOMOGRAM ABNORMAL [None]
  - EMPYEMA [None]
  - LYMPHADENOPATHY [None]
  - PNEUMONIA [None]
  - PNEUMONIA NECROTISING [None]
  - PULMONARY CAVITATION [None]
